FAERS Safety Report 5787081-8 (Version None)
Quarter: 2008Q2

REPORT INFORMATION
  Report Type: 
  Country: None (occurrence: None)
  Receive Date: 20080625
  Receipt Date: 20080617
  Transmission Date: 20081010
  Serious: Yes (Life-Threatening, Hospitalization)
  Sender: FDA-Public Use
  Company Number: JP-BRISTOL-MYERS SQUIBB COMPANY-14100010

PATIENT
  Age: 84 Year
  Sex: Female

DRUGS (6)
  1. GATIFLOXACIN [Suspect]
     Indication: BRONCHITIS
     Route: 048
     Dates: start: 20080215, end: 20080221
  2. GATIFLOXACIN [Suspect]
     Indication: PNEUMONIA
     Route: 048
     Dates: start: 20080215, end: 20080221
  3. LANSOPRAZOLE [Concomitant]
     Dosage: REINTRODUCED ON 4MAR08
     Route: 048
     Dates: start: 20080108, end: 20080221
  4. LEVOTHYROXINE SODIUM [Concomitant]
     Dosage: REINTRODUCED ON 13MAR08-50MCG/D
     Route: 048
     Dates: start: 20080108, end: 20080221
  5. MUCOSTA [Concomitant]
     Route: 048
     Dates: start: 20080108, end: 20080221
  6. LASIX [Concomitant]
     Dosage: REINTRODUCED ON 20-MAR-2008 AT 20MG/DAY.
     Route: 048
     Dates: start: 20071025, end: 20080221

REACTIONS (1)
  - AGRANULOCYTOSIS [None]
